FAERS Safety Report 9438940 (Version 1)
Quarter: 2013Q3

REPORT INFORMATION
  Report Type: Report from Study
  Country: DE (occurrence: DE)
  Receive Date: 20130802
  Receipt Date: 20130802
  Transmission Date: 20140515
  Serious: Yes (Hospitalization)
  Sender: FDA-Public Use
  Company Number: DE-CELGENEUS-062-21880-13070806

PATIENT
  Age: 71 Year
  Sex: Female
  Weight: 67 kg

DRUGS (9)
  1. REVLIMID [Suspect]
     Indication: PLASMA CELL MYELOMA
     Route: 048
     Dates: start: 20130408, end: 20130623
  2. DEXAMETHASONE [Suspect]
     Indication: PLASMA CELL MYELOMA
     Dosage: 40 MILLIGRAM
     Route: 048
     Dates: start: 20130408, end: 20130624
  3. FILGRASTIM [Suspect]
     Indication: PLASMA CELL MYELOMA
     Route: 058
     Dates: start: 20130709
  4. CYCLOPHOSPHAMIDE [Suspect]
     Indication: PLASMA CELL MYELOMA
     Dates: start: 20130704
  5. ETOPOSIDE [Suspect]
     Indication: PLASMA CELL MYELOMA
     Dates: start: 20130704
  6. RAMIPRIL [Concomitant]
     Indication: HYPERTENSION
     Dosage: 2.5 MILLIGRAM
     Route: 048
     Dates: start: 1998
  7. METOPROLOL [Concomitant]
     Indication: HYPERTENSION
     Dosage: 47.5 MILLIGRAM
     Route: 048
     Dates: start: 1998
  8. PANTOZOL [Concomitant]
     Indication: PROPHYLAXIS
     Dosage: 40 MILLIGRAM
     Route: 048
     Dates: start: 20130408
  9. AMLODIPINE [Concomitant]
     Indication: HYPERTENSION
     Dosage: 5 MILLIGRAM
     Route: 048
     Dates: start: 20130506

REACTIONS (2)
  - Blood stem cell harvest failure [Recovered/Resolved]
  - Atrial fibrillation [Not Recovered/Not Resolved]
